FAERS Safety Report 7741810-2 (Version None)
Quarter: 2011Q3

REPORT INFORMATION
  Report Type: 
  Country: None (occurrence: None)
  Receive Date: 20110912
  Receipt Date: 20110906
  Transmission Date: 20111222
  Serious: No
  Sender: FDA-Public Use
  Company Number: US-PFIZER INC-2011209251

PATIENT
  Age: 34 Year
  Sex: Female

DRUGS (2)
  1. TRIPHASIL-21 [Suspect]
     Indication: ENDOMETRIOSIS
  2. TRIPHASIL-21 [Suspect]
     Indication: OFF LABEL USE
     Dosage: UNK
     Dates: start: 20110601

REACTIONS (2)
  - PAIN IN EXTREMITY [None]
  - MUSCLE SPASMS [None]
